FAERS Safety Report 16941576 (Version 1)
Quarter: 2019Q4

REPORT INFORMATION
  Report Type: Spontaneous
  Country: US (occurrence: US)
  Receive Date: 20191020
  Receipt Date: 20191020
  Transmission Date: 20200122
  Serious: Yes (Disabling)
  Sender: FDA-Public Use
  Company Number: None

PATIENT
  Age: 55 Year
  Sex: Female
  Weight: 71.1 kg

DRUGS (1)
  1. TAMOXIFEN 20 MG TABLETS [Suspect]
     Active Substance: TAMOXIFEN
     Indication: BREAST CANCER
     Dosage: ?          QUANTITY:1 TABLET(S);?
     Route: 048

REACTIONS (3)
  - Sudden hearing loss [None]
  - Deafness unilateral [None]
  - Endolymphatic hydrops [None]

NARRATIVE: CASE EVENT DATE: 20180319
